FAERS Safety Report 13988853 (Version 2)
Quarter: 2017Q4

REPORT INFORMATION
  Report Type: Spontaneous
  Country: CA (occurrence: CA)
  Receive Date: 20170919
  Receipt Date: 20171003
  Transmission Date: 20180321
  Serious: Yes (Other)
  Sender: FDA-Public Use
  Company Number: PHHY2017CA136285

PATIENT
  Age: 53 Year
  Sex: Female
  Weight: 137 kg

DRUGS (3)
  1. ASPIRIN. [Concomitant]
     Active Substance: ASPIRIN
     Indication: THROMBOSIS PROPHYLAXIS
     Dosage: UNK
     Route: 065
  2. ARGATROBAN. [Suspect]
     Active Substance: ARGATROBAN
     Indication: HEPARIN-INDUCED THROMBOCYTOPENIA
     Dosage: 2.5 MCG/KG/MIN, UNK
     Route: 041
  3. ARGATROBAN. [Suspect]
     Active Substance: ARGATROBAN
     Dosage: 1.5 MCG/KG/MIN, UNK
     Route: 041

REACTIONS (1)
  - Deep vein thrombosis [Recovered/Resolved]
